FAERS Safety Report 10091716 (Version 1)
Quarter: 2014Q2

REPORT INFORMATION
  Report Type: Spontaneous
  Country: US (occurrence: US)
  Receive Date: 20140421
  Receipt Date: 20140421
  Transmission Date: 20141212
  Serious: No
  Sender: FDA-Public Use
  Company Number: US-PURDUE-USA-2003-0009535

PATIENT
  Sex: Male

DRUGS (4)
  1. OXYFAST CONCENTRATE 20 MG/ML [Suspect]
     Indication: PAIN
     Dosage: UNK MG/ML, SEE TEXT
     Route: 048
  2. OXYCONTIN TABLETS [Suspect]
     Indication: PAIN
     Dosage: 160 MG, TID
     Route: 048
  3. ZANAFLEX [Concomitant]
     Indication: PRODUCT USED FOR UNKNOWN INDICATION
     Dosage: 4 MG, HS
     Route: 048
  4. UNKNOWN [Concomitant]
     Dosage: UNK, UNK

REACTIONS (3)
  - Retching [Unknown]
  - Nausea [Unknown]
  - Constipation [Unknown]
